FAERS Safety Report 9290560 (Version 1)
Quarter: 2013Q2

REPORT INFORMATION
  Report Type: Spontaneous
  Country: CA (occurrence: CA)
  Receive Date: 20130515
  Receipt Date: 20130515
  Transmission Date: 20140414
  Serious: Yes (Life-Threatening)
  Sender: FDA-Public Use
  Company Number: CA-PFIZER INC-2013128367

PATIENT
  Age: 78 Year
  Sex: Male
  Weight: 76.1 kg

DRUGS (4)
  1. CRIZOTINIB [Suspect]
     Indication: LUNG NEOPLASM MALIGNANT
     Dosage: 250 MG, 2X/DAY CYCLE: DAY 28
     Route: 048
     Dates: start: 20130307
  2. DECADRON [Concomitant]
     Indication: METASTASES TO CENTRAL NERVOUS SYSTEM
     Dosage: 4 MG, 1X/DAY
     Route: 048
     Dates: start: 201211
  3. ZOPICLONE [Concomitant]
     Indication: INSOMNIA
     Dosage: 5 MG, 1X/DAY AS NEEDED
     Route: 048
  4. TERAZOSIN [Concomitant]
     Indication: DYSURIA
     Dosage: 5 MG, 1X/DAY
     Route: 048

REACTIONS (1)
  - Deep vein thrombosis [Recovering/Resolving]
